FAERS Safety Report 23868085 (Version 1)
Quarter: 2024Q2

REPORT INFORMATION
  Report Type: Spontaneous
  Country: US (occurrence: US)
  Receive Date: 20240517
  Receipt Date: 20240517
  Transmission Date: 20240716
  Serious: No
  Sender: FDA-Public Use
  Company Number: US-009507513-2404USA009761

PATIENT
  Age: 58 Year
  Sex: Male

DRUGS (2)
  1. TEMODAR [Suspect]
     Active Substance: TEMOZOLOMIDE
     Indication: Glioblastoma
     Dosage: 165 MILLIGRAM, QD
     Route: 048
  2. TEMODAR [Suspect]
     Active Substance: TEMOZOLOMIDE
     Dosage: 330 MILLIGRAM, QD FOR FIVE DAYS, WITH A FOUR-WEEK BREAK BETWEEN EACH CYCLE
     Route: 048

REACTIONS (1)
  - Conjunctivitis [Recovered/Resolved]
